FAERS Safety Report 9276653 (Version 1)
Quarter: 2013Q2

REPORT INFORMATION
  Report Type: Spontaneous
  Country: US (occurrence: None)
  Receive Date: 20130501
  Receipt Date: 20130501
  Transmission Date: 20140414
  Serious: Yes (Other)
  Sender: FDA-Public Use
  Company Number: 1684268

PATIENT
  Age: 73 Year
  Sex: Male

DRUGS (3)
  1. FLUDARABINE PHOSPHATE [Suspect]
     Indication: CHRONIC LYMPHOCYTIC LEUKAEMIA
  2. RITUXIMAB [Suspect]
     Indication: CHRONIC LYMPHOCYTIC LEUKAEMIA
  3. CORTICOSTEROIDS [Suspect]
     Indication: IMMUNOSUPPRESSANT DRUG THERAPY

REACTIONS (8)
  - Renal failure acute [None]
  - Polyomavirus-associated nephropathy [None]
  - Renal tubular disorder [None]
  - Renal tubular atrophy [None]
  - Kidney fibrosis [None]
  - Glomerulosclerosis [None]
  - Glomerulonephritis membranous [None]
  - Leukaemic infiltration renal [None]
